FAERS Safety Report 18802614 (Version 5)
Quarter: 2022Q2

REPORT INFORMATION
  Report Type: Report from Study
  Country: CN (occurrence: CN)
  Receive Date: 20210128
  Receipt Date: 20220609
  Transmission Date: 20220720
  Serious: Yes (Hospitalization)
  Sender: FDA-Public Use
  Company Number: CN-GILEAD-2021-0514973

PATIENT
  Sex: Male
  Weight: 65 kg

DRUGS (17)
  1. COBICISTAT\ELVITEGRAVIR\EMTRICITABINE\TENOFOVIR [Suspect]
     Active Substance: COBICISTAT\ELVITEGRAVIR\EMTRICITABINE\TENOFOVIR
     Indication: HIV infection
     Dosage: 1 DOSAGE FORM, QD
     Route: 048
     Dates: start: 20201124, end: 20201201
  2. LORATADINE [Concomitant]
     Active Substance: LORATADINE
     Indication: Rash
     Route: 048
     Dates: start: 20201120, end: 20201224
  3. PANTOPRAZOLE SODIUM [Concomitant]
     Active Substance: PANTOPRAZOLE SODIUM
     Indication: Fungal oesophagitis
     Route: 042
     Dates: start: 20201202, end: 20201225
  4. AMOXICILLIN\CLAVULANATE POTASSIUM [Concomitant]
     Active Substance: AMOXICILLIN\CLAVULANATE POTASSIUM
     Indication: Soft tissue infection
     Route: 042
     Dates: start: 20201210, end: 20201225
  5. CALCIUM GLUCONATE [Concomitant]
     Active Substance: CALCIUM GLUCONATE
     Indication: Rash
     Route: 042
     Dates: start: 20201219, end: 20210101
  6. CALCIUM GLUCONATE [Concomitant]
     Active Substance: CALCIUM GLUCONATE
     Route: 048
     Dates: start: 20201120, end: 20201219
  7. CHLORPHENIRAMINE MALEATE [Concomitant]
     Active Substance: CHLORPHENIRAMINE MALEATE
     Route: 048
     Dates: start: 20201202, end: 20201202
  8. LACTULOSE [Concomitant]
     Active Substance: LACTULOSE
     Route: 048
     Dates: start: 20201206, end: 20201206
  9. COMPOUND GLYCYRRHIZA MIXTURE [Concomitant]
     Route: 048
     Dates: start: 20201202, end: 20201202
  10. BICYCLOL [Concomitant]
     Active Substance: BICYCLOL
     Indication: Hepatic lesion
     Route: 048
     Dates: start: 20201210, end: 20201210
  11. BICYCLOL [Concomitant]
     Active Substance: BICYCLOL
     Route: 042
     Dates: start: 20201120, end: 20201201
  12. LACTOBACILLUS BIFIDUS LYOPHILIZED [Concomitant]
     Indication: Enteritis
     Route: 042
     Dates: start: 20201210, end: 20201210
  13. PHOSPHOLIPID [Concomitant]
     Active Substance: PHOSPHOLIPID
     Indication: Hepatic lesion
     Route: 042
     Dates: start: 20201120, end: 20201202
  14. ASCORBIC ACID [Concomitant]
     Active Substance: ASCORBIC ACID
     Indication: Rash
     Route: 042
     Dates: start: 20201120, end: 20210101
  15. FLUCONAZOLE [Concomitant]
     Active Substance: FLUCONAZOLE
     Indication: Oral fungal infection
     Route: 042
     Dates: start: 20201120, end: 20201202
  16. DEXAMETHASONE SODIUM PHOSPHATE EIPICO [Concomitant]
     Indication: Rash
     Route: 042
     Dates: start: 20201202, end: 20201207
  17. SODIUM CHLORIDE [Concomitant]
     Active Substance: SODIUM CHLORIDE

REACTIONS (4)
  - Drug eruption [Recovered/Resolved with Sequelae]
  - Soft tissue infection [Recovered/Resolved with Sequelae]
  - Upper respiratory tract infection [Recovered/Resolved]
  - Intracranial hypotension [Recovered/Resolved]

NARRATIVE: CASE EVENT DATE: 20201129
